FAERS Safety Report 6717208-2 (Version None)
Quarter: 2010Q2

REPORT INFORMATION
  Report Type: 
  Country: None (occurrence: None)
  Receive Date: 20100510
  Receipt Date: 20100429
  Transmission Date: 20101027
  Serious: Yes (Other)
  Sender: FDA-Public Use
  Company Number: PHEH2010US03251

PATIENT
  Sex: Male
  Weight: 85 kg

DRUGS (8)
  1. EXELON [Suspect]
     Indication: COGNITIVE DISORDER
     Dosage: 4.6 MG
     Route: 062
     Dates: start: 20100101, end: 20100301
  2. CELEBREX [Concomitant]
     Dosage: 200 MG, QD FOR 5 YRS
     Route: 048
  3. NAMENDA [Concomitant]
     Indication: COGNITIVE DISORDER
     Dosage: 200 MG, BID
     Route: 048
     Dates: start: 20100201
  4. TRAZODONE [Concomitant]
     Indication: MUSCLE SPASMS
     Dosage: 50 MG
     Route: 048
     Dates: start: 19980101
  5. FLECAINIDE ACETATE [Concomitant]
     Indication: ATRIAL TACHYCARDIA
     Dosage: 10 MG, QD
     Route: 048
  6. FLECAINIDE ACETATE [Concomitant]
     Indication: SUPRAVENTRICULAR EXTRASYSTOLES
  7. PROBENECID [Concomitant]
     Indication: PODAGRA
     Dosage: 500 MG/ 1.5MG TIW
     Route: 048
     Dates: start: 19900101
  8. PREDNISOLONE [Concomitant]
     Dosage: 01 MG, QD

REACTIONS (6)
  - DRY MOUTH [None]
  - INTRAOCULAR PRESSURE INCREASED [None]
  - NORMAL TENSION GLAUCOMA [None]
  - OPTIC DISC HAEMORRHAGE [None]
  - POLLAKIURIA [None]
  - PROSTATE CANCER [None]
